FAERS Safety Report 23469157 (Version 3)
Quarter: 2024Q2

REPORT INFORMATION
  Report Type: Report from Study
  Country: US (occurrence: US)
  Receive Date: 20240202
  Receipt Date: 20240620
  Transmission Date: 20240716
  Serious: Yes (Other)
  Sender: FDA-Public Use
  Company Number: US-JNJFOC-20240167221

PATIENT
  Age: 50 Year
  Sex: Female

DRUGS (2)
  1. SPRAVATO [Suspect]
     Active Substance: ESKETAMINE
     Indication: Depression
     Dosage: ^56 MG, 1 TOTAL DOSE^
     Dates: start: 20231205, end: 20231205
  2. SPRAVATO [Suspect]
     Active Substance: ESKETAMINE
     Dosage: ^84 MG,13 TOTAL DOSES^
     Dates: start: 20231208, end: 20240611

REACTIONS (2)
  - Bradycardia [Unknown]
  - Hospitalisation [Unknown]

NARRATIVE: CASE EVENT DATE: 20231229
